FAERS Safety Report 26007410 (Version 2)
Quarter: 2025Q4

REPORT INFORMATION
  Report Type: Spontaneous
  Country: US (occurrence: US)
  Receive Date: 20251106
  Receipt Date: 20251113
  Transmission Date: 20260117
  Serious: Yes (Other)
  Sender: PFIZER
  Company Number: US-MLMSERVICE-20251027-PI688387-00165-1

PATIENT
  Age: 6 Decade
  Sex: Female

DRUGS (10)
  1. GEMCITABINE HYDROCHLORIDE [Suspect]
     Active Substance: GEMCITABINE HYDROCHLORIDE
     Indication: Breast cancer metastatic
     Dosage: UNK
  2. GEMCITABINE HYDROCHLORIDE [Suspect]
     Active Substance: GEMCITABINE HYDROCHLORIDE
     Indication: Hormone receptor positive HER2 negative breast cancer
  3. GEMCITABINE HYDROCHLORIDE [Suspect]
     Active Substance: GEMCITABINE HYDROCHLORIDE
     Indication: Metastases to liver
  4. GEMCITABINE HYDROCHLORIDE [Suspect]
     Active Substance: GEMCITABINE HYDROCHLORIDE
     Indication: Superior vena cava syndrome
  5. CARBOPLATIN [Concomitant]
     Active Substance: CARBOPLATIN
     Indication: Breast cancer metastatic
     Dosage: UNK
  6. CARBOPLATIN [Concomitant]
     Active Substance: CARBOPLATIN
     Indication: Hormone receptor positive HER2 negative breast cancer
  7. CARBOPLATIN [Concomitant]
     Active Substance: CARBOPLATIN
     Indication: Metastases to liver
  8. CARBOPLATIN [Concomitant]
     Active Substance: CARBOPLATIN
     Indication: Superior vena cava syndrome
  9. ANASTROZOLE [Concomitant]
     Active Substance: ANASTROZOLE
     Indication: Hormone receptor positive breast cancer
     Dosage: UNK
  10. ANASTROZOLE [Concomitant]
     Active Substance: ANASTROZOLE
     Indication: Breast cancer metastatic

REACTIONS (1)
  - Transaminases increased [Unknown]
